FAERS Safety Report 7480033-1 (Version None)
Quarter: 2011Q2

REPORT INFORMATION
  Report Type: 
  Country: None (occurrence: None)
  Receive Date: 20110516
  Receipt Date: 20110505
  Transmission Date: 20111010
  Serious: No
  Sender: FDA-Public Use
  Company Number: US-BIOGENIDEC-2010BI042419

PATIENT
  Sex: Female

DRUGS (4)
  1. BENADRYL [Concomitant]
     Indication: PREMEDICATION
  2. ACETAMINOPHEN [Concomitant]
     Indication: PREMEDICATION
  3. TYSABRI [Suspect]
     Indication: MULTIPLE SCLEROSIS
     Route: 042
     Dates: start: 20100503
  4. REBIF [Concomitant]
     Indication: MULTIPLE SCLEROSIS

REACTIONS (7)
  - CHILLS [None]
  - NAUSEA [None]
  - TACHYCARDIA [None]
  - DEFAECATION URGENCY [None]
  - CHEST DISCOMFORT [None]
  - FLUSHING [None]
  - HYPERSENSITIVITY [None]
